FAERS Safety Report 7367088-X (Version None)
Quarter: 2011Q1

REPORT INFORMATION
  Report Type: 
  Country: None (occurrence: None)
  Receive Date: 20110322
  Receipt Date: 20090528
  Transmission Date: 20110831
  Serious: Yes (Death, Hospitalization, Other)
  Sender: FDA-Public Use
  Company Number: US-BAYER-200921719NA

PATIENT
  Sex: Male
  Weight: 85.261 kg

DRUGS (43)
  1. HEPARIN [Concomitant]
     Dosage: 1000U/ML/30CC
     Route: 042
     Dates: start: 20010713, end: 20010725
  2. CIPRO [Concomitant]
     Dosage: 600 MG, BID
     Route: 048
     Dates: start: 20010622
  3. CLOTRIMAZOLE [Concomitant]
     Dosage: 1% / APPLY DAILY TO THIGH
     Route: 061
     Dates: start: 20010412
  4. DIGOXIN [Concomitant]
     Dosage: 0.25 MG, UNK
     Dates: start: 20010709
  5. FLAGYL [Concomitant]
     Dosage: 500 MG, TID
     Route: 048
     Dates: start: 20010622
  6. DOPAMINE [Concomitant]
     Dosage: 6 CC/HR
     Route: 042
     Dates: start: 20010713, end: 20010727
  7. NULYTELY [MACROGOL,POTASSIUM CHLORIDE,SODIUM BICARBONATE,SODIUM CHLORI [Concomitant]
     Dosage: UNK
     Route: 048
     Dates: start: 20010622
  8. CHOLESTYRAMINE [Concomitant]
     Dosage: UNK
     Route: 048
     Dates: start: 20010702
  9. PLENDIL [Concomitant]
     Indication: HYPERTENSION
     Dosage: 10 MG, QD AS NEEDED
     Dates: start: 20010709
  10. DIPYRIDAMOLE [Concomitant]
     Dosage: 10MG/2 ML AMP
     Dates: start: 20010710
  11. NAPROXEN [Concomitant]
     Dosage: 220 MG, QD
     Route: 048
     Dates: start: 20010618
  12. LEVAQUIN [Concomitant]
     Dosage: 250 MG, QD
     Route: 048
     Dates: start: 20010618, end: 20010622
  13. DOBUTREX [Concomitant]
     Dosage: 12 CC/HR
     Route: 042
     Dates: start: 20010713, end: 20010715
  14. TRASYLOL [Suspect]
     Dosage: INFUSION
     Route: 042
  15. HYDROCHLOROTHIAZIDE [Concomitant]
     Dosage: 25 MG/  HALF TABLET DAILY
     Route: 048
     Dates: start: 20010412, end: 20010501
  16. MEVACOR [Concomitant]
     Dosage: 10 MG, QD
     Route: 048
     Dates: start: 20010618
  17. RED BLOOD CELLS [Concomitant]
     Dosage: 2 U, UNK
     Dates: start: 20010713
  18. LOVASTATIN [Concomitant]
     Indication: HYPERCHOLESTEROLAEMIA
     Dosage: 20 MG/ ONE HALF TABLET DAILY
     Route: 048
     Dates: start: 20010412
  19. DEMEROL [Concomitant]
     Dosage: 25 MG, UNK
     Route: 042
     Dates: start: 20010618
  20. ROCEPHIN [Concomitant]
     Indication: COLITIS
     Dosage: 1 G, ONCE
     Route: 030
     Dates: start: 20010614
  21. FUROSEMIDE [Concomitant]
     Dosage: 100MG/10 ML
     Route: 042
     Dates: start: 20010709
  22. INSULIN REGULAR [INSULIN PORCINE] [Concomitant]
     Dosage: 8 U, BID
     Route: 058
  23. TRASYLOL [Suspect]
     Indication: CORONARY ARTERY BYPASS
     Dosage: 200 ML, LOADING DOSE
     Dates: start: 20010713
  24. HYDROCODONE BITARTRATE AND ACETAMINOPHEN [Concomitant]
     Indication: NECK PAIN
     Dosage: 5/500MG
     Dates: start: 20010622
  25. CIPRO [Concomitant]
     Dosage: 500 MG, BID
     Route: 048
     Dates: start: 20010622
  26. FELODIPINE [Concomitant]
     Indication: HYPERTENSION
     Dosage: 10MG DAILY
     Route: 048
     Dates: start: 20010302
  27. LISINOPRIL [Concomitant]
     Dosage: 20 MG, DAILY
     Route: 048
  28. LASIX [Concomitant]
     Dosage: 40-80MG, TWICE DAILY
     Route: 048
  29. UNKNOWN [Concomitant]
     Dosage: 650 CC
     Dates: start: 20010713
  30. LISINOPRIL [Concomitant]
     Indication: HYPERTENSION
     Dosage: 40 MG, QD
     Route: 048
     Dates: start: 20010412
  31. K-DUR [Concomitant]
     Dosage: 20 MEQ, BID
     Route: 048
     Dates: start: 20010709
  32. PEPCID [Concomitant]
     Dosage: 20 MG, BID
     Route: 048
     Dates: start: 20010618, end: 20010622
  33. HYDROCODONE BITARTRATE AND ACETAMINOPHEN [Concomitant]
     Indication: PRODUCT USED FOR UNKNOWN INDICATION
     Dosage: 7.5/750 MG
     Route: 048
     Dates: start: 20010509
  34. PROPOXYPHENE NAPSYLATE W/PARACETAMOL [Concomitant]
     Dosage: 100/650 MG
     Route: 048
     Dates: start: 20010614
  35. LONOX [Concomitant]
     Dosage: UNK
     Route: 048
     Dates: start: 20010614
  36. FELODIPINE [Concomitant]
     Dosage: 10 MG, QD
     Route: 048
     Dates: start: 20010402
  37. CARBIDOPA + LEVODOPA [Concomitant]
     Dosage: 25/250MG, 2 TABLETS AT BEDTIME
     Route: 048
     Dates: start: 20010412
  38. DROPERIDOL [Concomitant]
     Dosage: 1.25 MG, UNK
     Route: 042
     Dates: start: 20110618
  39. LORAZEPAM [Concomitant]
     Indication: ANXIETY
     Dosage: 1 MG, BID
     Dates: start: 20010412
  40. NPH INSULIN [Concomitant]
     Dosage: 100 UNITS/10 CC
     Route: 058
     Dates: start: 20010709
  41. NPH INSULIN [Concomitant]
     Dosage: 28 U, BID
     Route: 058
  42. ACETYLSALICYLIC ACID SRT [Concomitant]
     Dosage: 81 MG, UNK
     Dates: start: 20010711
  43. PROTAMINE SULFATE [Concomitant]
     Dosage: 600 MG, UNK
     Route: 042
     Dates: start: 20010713

REACTIONS (6)
  - RENAL INJURY [None]
  - PAIN [None]
  - UNEVALUABLE EVENT [None]
  - INJURY [None]
  - RENAL FAILURE ACUTE [None]
  - RENAL FAILURE [None]
